FAERS Safety Report 20450746 (Version 2)
Quarter: 2022Q2

REPORT INFORMATION
  Report Type: Spontaneous
  Country: US (occurrence: US)
  Receive Date: 20220209
  Receipt Date: 20220419
  Transmission Date: 20220721
  Serious: Yes (Death, Other)
  Sender: FDA-Public Use
  Company Number: US-SANOFI-00452821

PATIENT
  Age: 66 Year
  Sex: Female

DRUGS (1)
  1. LANTUS [Suspect]
     Active Substance: INSULIN GLARGINE
     Indication: Diabetes mellitus
     Dosage: 50 IU, QD
     Route: 058

REACTIONS (2)
  - Cardio-respiratory arrest [Fatal]
  - Cerebrovascular accident [Unknown]
